FAERS Safety Report 14406858 (Version 3)
Quarter: 2018Q3

REPORT INFORMATION
  Report Type: Spontaneous
  Country: US (occurrence: US)
  Receive Date: 20180118
  Receipt Date: 20180824
  Transmission Date: 20181010
  Serious: Yes (Hospitalization, Other)
  Sender: FDA-Public Use
  Company Number: US-DSJP-DSU-2017-137914

PATIENT

DRUGS (2)
  1. BENICAR [Suspect]
     Active Substance: OLMESARTAN MEDOXOMIL
     Indication: HYPERTENSION
     Dosage: 40 MG, DAILY
     Route: 048
     Dates: start: 20080618
  2. BENICAR [Suspect]
     Active Substance: OLMESARTAN MEDOXOMIL
     Dosage: 40 MG, BID

REACTIONS (9)
  - Hepatic steatosis [Unknown]
  - Large intestine polyp [Recovered/Resolved]
  - Haemorrhoids [Unknown]
  - Gastrooesophageal reflux disease [Not Recovered/Not Resolved]
  - Infectious colitis [Unknown]
  - Diverticulum intestinal [Unknown]
  - Rectal polyp [Recovered/Resolved]
  - Diverticulitis [Recovered/Resolved]
  - Sprue-like enteropathy [Recovering/Resolving]

NARRATIVE: CASE EVENT DATE: 20080620
